FAERS Safety Report 13355251 (Version 1)
Quarter: 2017Q1

REPORT INFORMATION
  Report Type: Spontaneous
  Country: US (occurrence: US)
  Receive Date: 20170321
  Receipt Date: 20170321
  Transmission Date: 20170429
  Serious: No
  Sender: FDA-Public Use
  Company Number: US-BAUSCH-BL-2016-009571

PATIENT
  Age: 58 Year
  Sex: Female
  Weight: 69.46 kg

DRUGS (1)
  1. RETIN-A [Suspect]
     Active Substance: TRETINOIN
     Indication: ACNE
     Route: 061
     Dates: start: 20160412, end: 20160412

REACTIONS (9)
  - Dry skin [Recovering/Resolving]
  - Skin exfoliation [Recovering/Resolving]
  - Application site papules [Recovering/Resolving]
  - Rash [Recovering/Resolving]
  - Sunburn [Recovering/Resolving]
  - Burning sensation [Recovering/Resolving]
  - Erythema [Recovering/Resolving]
  - Blister [Recovering/Resolving]
  - Feeling hot [Recovering/Resolving]

NARRATIVE: CASE EVENT DATE: 201604
